FAERS Safety Report 7047539-0 (Version None)
Quarter: 2010Q4

REPORT INFORMATION
  Report Type: 
  Country: None (occurrence: None)
  Receive Date: 20101015
  Receipt Date: 20101004
  Transmission Date: 20110411
  Serious: Yes (Hospitalization, Congenital Anomaly)
  Sender: FDA-Public Use
  Company Number: FR-PFIZER INC-2010120380

PATIENT
  Sex: Female
  Weight: 2.1 kg

DRUGS (2)
  1. ATENOLOL [Suspect]
     Indication: HYPERTENSION
     Dosage: 50 MG, DAILY
     Route: 064
     Dates: end: 20100903
  2. LOXEN [Suspect]
     Dosage: 50 MG, DAILY
     Route: 064
     Dates: end: 20100903

REACTIONS (6)
  - DRUG EXPOSURE DURING PREGNANCY [None]
  - FOETAL GROWTH RESTRICTION [None]
  - FOETAL HEART RATE DISORDER [None]
  - HYPOGLYCAEMIA NEONATAL [None]
  - OLIGOHYDRAMNIOS [None]
  - PELVIC KIDNEY [None]
